FAERS Safety Report 10453549 (Version 2)
Quarter: 2014Q3

REPORT INFORMATION
  Report Type: Spontaneous
  Country: US (occurrence: US)
  Receive Date: 20140915
  Receipt Date: 20140915
  Transmission Date: 20150326
  Serious: No
  Sender: FDA-Public Use
  Company Number: US-BRISTOL-MYERS SQUIBB COMPANY-21168562

PATIENT
  Age: 76 Year
  Sex: Male
  Weight: 95.24 kg

DRUGS (1)
  1. ELIQUIS [Suspect]
     Active Substance: APIXABAN

REACTIONS (1)
  - Constipation [Unknown]

NARRATIVE: CASE EVENT DATE: 2014
